FAERS Safety Report 9458051 (Version 1)
Quarter: 2013Q3

REPORT INFORMATION
  Report Type: Spontaneous
  Country: US (occurrence: US)
  Receive Date: 20130814
  Receipt Date: 20130814
  Transmission Date: 20140515
  Serious: No
  Sender: FDA-Public Use
  Company Number: US-PFIZER INC-2013235374

PATIENT
  Age: 83 Year
  Sex: Female

DRUGS (2)
  1. LYRICA [Suspect]
     Indication: NEURALGIA
     Dosage: 100 MG, UNK
  2. LYRICA [Suspect]
     Indication: POST HERPETIC NEURALGIA

REACTIONS (4)
  - Burning sensation [Unknown]
  - Limb discomfort [Unknown]
  - Muscle spasms [Unknown]
  - Pain [Unknown]
